FAERS Safety Report 6146895-5 (Version None)
Quarter: 2009Q2

REPORT INFORMATION
  Report Type: 
  Country: None (occurrence: None)
  Receive Date: 20090407
  Receipt Date: 20090407
  Transmission Date: 20091009
  Serious: Yes (Death, Other)
  Sender: FDA-Public Use
  Company Number: US-ROXANE LABORATORIES, INC.-2009-RO-00174RO

PATIENT
  Sex: Female
  Weight: 79 kg

DRUGS (4)
  1. METHADONE [Suspect]
     Route: 065
  2. OXYCONTIN [Concomitant]
     Indication: PAIN
  3. SOMA [Concomitant]
     Indication: PAIN
  4. NORCO [Concomitant]
     Indication: PAIN

REACTIONS (2)
  - DRUG TOXICITY [None]
  - PULMONARY OEDEMA [None]
